FAERS Safety Report 24313400 (Version 1)
Quarter: 2024Q3

REPORT INFORMATION
  Report Type: Spontaneous
  Country: IN (occurrence: IN)
  Receive Date: 20240912
  Receipt Date: 20240912
  Transmission Date: 20241016
  Serious: Yes (Other)
  Sender: STRIDES
  Company Number: None

PATIENT
  Age: 55 Year
  Sex: Female

DRUGS (7)
  1. PREDNISOLONE [Suspect]
     Active Substance: PREDNISOLONE
     Indication: Systemic scleroderma
     Dosage: LOW DOSE
     Route: 065
  2. MYCOPHENOLATE MOFETIL [Suspect]
     Active Substance: MYCOPHENOLATE MOFETIL
     Indication: Systemic scleroderma
     Dosage: 500 MILLIGRAM, BID
     Route: 065
  3. OXYGEN [Concomitant]
     Active Substance: OXYGEN
     Indication: Oxygen therapy
     Dosage: DOMICILIARY OXYGEN THERAPY  FOR 15-18HOURS DAILY
     Route: 045
  4. DENOSUMAB [Concomitant]
     Active Substance: DENOSUMAB
     Indication: Osteoporosis
     Route: 065
  5. AMBRISENTAN [Concomitant]
     Active Substance: AMBRISENTAN
     Indication: Pulmonary hypertension
     Dosage: 5 MILLIGRAM, QD
     Route: 065
  6. NINTEDANIB [Concomitant]
     Active Substance: NINTEDANIB
     Indication: Interstitial lung disease
     Dosage: 150 MILLIGRAM, BID
     Route: 065
  7. TADALAFIL [Concomitant]
     Active Substance: TADALAFIL
     Indication: Pulmonary hypertension
     Dosage: 20 MILLIGRAM, QD
     Route: 065

REACTIONS (4)
  - Adenosquamous cell lung cancer [Unknown]
  - Tricuspid valve incompetence [Unknown]
  - Cardiomegaly [Unknown]
  - Respiratory failure [Unknown]
